FAERS Safety Report 5536287-1 (Version None)
Quarter: 2007Q4

REPORT INFORMATION
  Report Type: 
  Country: None (occurrence: None)
  Receive Date: 20071206
  Receipt Date: 20071204
  Transmission Date: 20080405
  Serious: Yes (Life-Threatening, Hospitalization)
  Sender: FDA-Public Use
  Company Number: DE-BOEHRINGER INGELHEIM PHARMACEUTICALS, INC.-2007-DE-07199DE

PATIENT
  Sex: Male

DRUGS (1)
  1. SIFROL [Suspect]
     Indication: PARKINSON'S DISEASE
     Route: 048
     Dates: start: 20070928

REACTIONS (1)
  - RESPIRATORY ALKALOSIS [None]
